FAERS Safety Report 4732534-4 (Version None)
Quarter: 2005Q3

REPORT INFORMATION
  Report Type: 
  Country: None (occurrence: None)
  Receive Date: 20050803
  Receipt Date: 20050626
  Transmission Date: 20060218
  Serious: Yes (Death)
  Sender: FDA-Public Use
  Company Number: BE-GLAXOSMITHKLINE-B0386253A

PATIENT
  Age: 4 Month
  Sex: Female
  Weight: 2.9 kg

DRUGS (2)
  1. AUGMENTIN '125' [Suspect]
     Indication: LUNG INFECTION
     Route: 065
     Dates: start: 20020315
  2. ZANTAC [Concomitant]
     Indication: DRUG USE FOR UNKNOWN INDICATION

REACTIONS (8)
  - ACUTE RESPIRATORY DISTRESS SYNDROME [None]
  - CONDITION AGGRAVATED [None]
  - HEPATIC FAILURE [None]
  - HEPATITIS [None]
  - HEPATITIS FULMINANT [None]
  - LACTIC ACIDOSIS [None]
  - METABOLIC DISORDER [None]
  - WEIGHT DECREASED [None]
